FAERS Safety Report 6074236-0 (Version None)
Quarter: 2009Q1

REPORT INFORMATION
  Report Type: 
  Country: None (occurrence: None)
  Receive Date: 20090211
  Receipt Date: 20090209
  Transmission Date: 20090719
  Serious: Yes (Hospitalization, Disabling)
  Sender: FDA-Public Use
  Company Number: AU-ASTRAZENECA-2009AP00892

PATIENT
  Age: 814 Month
  Sex: Male
  Weight: 65 kg

DRUGS (3)
  1. CRESTOR [Suspect]
     Indication: HYPERLIPIDAEMIA
     Route: 048
     Dates: start: 20081001, end: 20090113
  2. DIABEX [Concomitant]
     Indication: DIABETES MELLITUS
     Route: 065
     Dates: start: 20060101
  3. DIAMICRON [Concomitant]
     Indication: DIABETES MELLITUS
     Route: 065
     Dates: start: 20060101

REACTIONS (2)
  - ASTHENIA [None]
  - SENSORY LOSS [None]
